FAERS Safety Report 11790071 (Version 1)
Quarter: 2015Q4

REPORT INFORMATION
  Report Type: Spontaneous
  Country: US (occurrence: None)
  Receive Date: 20151130
  Receipt Date: 20151130
  Transmission Date: 20160305
  Serious: Yes (Life-Threatening, Hospitalization)
  Sender: FDA-Public Use
  Company Number: None

PATIENT
  Age: 54 Year
  Sex: Female

DRUGS (1)
  1. REPATHA [Suspect]
     Active Substance: EVOLOCUMAB
     Dosage: 140 MG/ML ONCE EVERY TWO WEEKS SUBCUTANEOUS
     Route: 058
     Dates: start: 20151109

REACTIONS (2)
  - Anaphylactic shock [None]
  - Myocardial infarction [None]
